FAERS Safety Report 4378192-2 (Version None)
Quarter: 2004Q2

REPORT INFORMATION
  Report Type: 
  Country: None (occurrence: None)
  Receive Date: 20040614
  Receipt Date: 20040614
  Transmission Date: 20050107
  Serious: Yes (Life-Threatening)
  Sender: FDA-Public Use
  Company Number: None

PATIENT
  Age: 55 Year
  Sex: Male
  Weight: 57 kg

DRUGS (3)
  1. ZOSYN [Suspect]
     Indication: PNEUMONIA
     Dosage: Q6 HOURS
     Dates: start: 20040524, end: 20040531
  2. PROTONIX [Concomitant]
  3. ADEFOVIR [Concomitant]

REACTIONS (5)
  - EOSINOPHIL COUNT INCREASED [None]
  - ERYTHEMA MULTIFORME [None]
  - PNEUMONIA STAPHYLOCOCCAL [None]
  - RESPIRATORY ACIDOSIS [None]
  - SEPSIS [None]
